FAERS Safety Report 24127434 (Version 1)
Quarter: 2024Q3

REPORT INFORMATION
  Report Type: Spontaneous
  Country: IT (occurrence: IT)
  Receive Date: 20240723
  Receipt Date: 20240723
  Transmission Date: 20241017
  Serious: Yes (Other)
  Sender: SANOFI AVENTIS
  Company Number: None

PATIENT
  Age: 75 Year
  Sex: Male

DRUGS (2)
  1. OXALIPLATIN [Suspect]
     Active Substance: OXALIPLATIN
     Dosage: 147 MG
     Route: 042
     Dates: start: 20240709
  2. FLUOROURACIL [Suspect]
     Active Substance: FLUOROURACIL
     Dosage: 5000 MG
     Route: 042
     Dates: start: 20240709, end: 20240711

REACTIONS (4)
  - Neurotoxicity [Unknown]
  - Thrombocytopenia [Unknown]
  - Diarrhoea [Unknown]
  - Asthenia [Unknown]

NARRATIVE: CASE EVENT DATE: 20240709
